FAERS Safety Report 4562183-2 (Version None)
Quarter: 2005Q1

REPORT INFORMATION
  Report Type: 
  Country: None (occurrence: None)
  Receive Date: 20050124
  Receipt Date: 20050105
  Transmission Date: 20050727
  Serious: Yes (Hospitalization)
  Sender: FDA-Public Use
  Company Number: B0364024A

PATIENT
  Age: 29 Year
  Sex: Female

DRUGS (1)
  1. EPIVIR-HBV [Suspect]
     Dosage: 100  MG/PER DAY/ORAL
     Route: 048
     Dates: start: 19991101, end: 20000807

REACTIONS (7)
  - ABORTION INDUCED [None]
  - ACUTE MYELOID LEUKAEMIA [None]
  - CHILLS [None]
  - DRUG EXPOSURE DURING PREGNANCY [None]
  - HAEMOGLOBIN DECREASED [None]
  - HEPATITIS B [None]
  - PYREXIA [None]
